FAERS Safety Report 21415594 (Version 11)
Quarter: 2024Q1

REPORT INFORMATION
  Report Type: Report from Study
  Country: MX (occurrence: MX)
  Receive Date: 20221006
  Receipt Date: 20240323
  Transmission Date: 20240410
  Serious: Yes (Other)
  Sender: FDA-Public Use
  Company Number: MX-NOVARTISPH-NVSC2022MX175079

PATIENT
  Age: 57 Year
  Sex: Female
  Weight: 67 kg

DRUGS (1)
  1. GILENYA [Suspect]
     Active Substance: FINGOLIMOD HYDROCHLORIDE
     Indication: Multiple sclerosis
     Dosage: 0.5 MG, QD
     Route: 048
     Dates: start: 20220411

REACTIONS (42)
  - Trigeminal neuralgia [Not Recovered/Not Resolved]
  - Speech disorder [Recovering/Resolving]
  - Eating disorder [Recovering/Resolving]
  - Facial discomfort [Unknown]
  - Pain [Unknown]
  - Facial paresis [Not Recovered/Not Resolved]
  - Feeling abnormal [Unknown]
  - Bradycardia [Not Recovered/Not Resolved]
  - Circadian rhythm sleep disorder [Not Recovered/Not Resolved]
  - Muscle rigidity [Not Recovered/Not Resolved]
  - Anxiety [Unknown]
  - Pain in extremity [Not Recovered/Not Resolved]
  - Arthralgia [Not Recovered/Not Resolved]
  - General physical health deterioration [Not Recovered/Not Resolved]
  - Movement disorder [Not Recovered/Not Resolved]
  - Muscle contracture [Unknown]
  - Ear pain [Unknown]
  - Reduced facial expression [Unknown]
  - Throat irritation [Unknown]
  - Decreased immune responsiveness [Unknown]
  - Tongue disorder [Unknown]
  - Dysphagia [Unknown]
  - Mood altered [Recovering/Resolving]
  - Stress [Unknown]
  - Gait disturbance [Not Recovered/Not Resolved]
  - Neuralgia [Recovered/Resolved]
  - Dizziness [Not Recovered/Not Resolved]
  - Nasopharyngitis [Unknown]
  - Nasal congestion [Not Recovered/Not Resolved]
  - Cough [Unknown]
  - Rhinorrhoea [Not Recovered/Not Resolved]
  - Muscle rigidity [Recovered/Resolved]
  - Feeling abnormal [Recovered/Resolved]
  - Arthralgia [Recovering/Resolving]
  - Balance disorder [Not Recovered/Not Resolved]
  - Memory impairment [Not Recovered/Not Resolved]
  - Finger deformity [Unknown]
  - Dizziness [Recovered/Resolved]
  - Fatigue [Not Recovered/Not Resolved]
  - Walking aid user [Unknown]
  - Gait disturbance [Unknown]
  - Arthralgia [Unknown]

NARRATIVE: CASE EVENT DATE: 20220605
